FAERS Safety Report 7832605-X (Version None)
Quarter: 2011Q4

REPORT INFORMATION
  Report Type: 
  Country: None (occurrence: None)
  Receive Date: 20111024
  Receipt Date: 20111014
  Transmission Date: 20120403
  Serious: No
  Sender: FDA-Public Use
  Company Number: US-BIOGENIDEC-2010BI038711

PATIENT
  Age: 56 Year
  Sex: Female

DRUGS (6)
  1. TYSABRI [Suspect]
     Indication: MULTIPLE SCLEROSIS
     Route: 042
     Dates: start: 20071018, end: 20081223
  2. AVONEX [Concomitant]
     Indication: MULTIPLE SCLEROSIS
     Route: 030
  3. NEURONTIN [Concomitant]
     Indication: NEUROPATHY PERIPHERAL
  4. COPAXONE [Concomitant]
     Indication: MULTIPLE SCLEROSIS
  5. TYSABRI [Suspect]
     Route: 042
     Dates: start: 20100827, end: 20110211
  6. AMANTADINE HCL [Concomitant]
     Indication: FATIGUE

REACTIONS (5)
  - FALL [None]
  - PAIN [None]
  - VISUAL IMPAIRMENT [None]
  - BACK PAIN [None]
  - FRACTURED COCCYX [None]
